FAERS Safety Report 14361021 (Version 1)
Quarter: 2018Q1

REPORT INFORMATION
  Report Type: Spontaneous
  Country: US (occurrence: US)
  Receive Date: 20180105
  Receipt Date: 20180105
  Transmission Date: 20180509
  Serious: Yes (Hospitalization)
  Sender: FDA-Public Use
  Company Number: None

PATIENT
  Age: 37 Year
  Sex: Male

DRUGS (2)
  1. GENOTROPIN [Suspect]
     Active Substance: SOMATROPIN
     Indication: HYPOTHALAMO-PITUITARY DISORDER
     Route: 058
     Dates: start: 20160624
  2. OCREVUS [Concomitant]
     Active Substance: OCRELIZUMAB

REACTIONS (2)
  - Urinary tract infection [None]
  - Pneumonia [None]

NARRATIVE: CASE EVENT DATE: 20171101
